FAERS Safety Report 7388371-8 (Version None)
Quarter: 2011Q2

REPORT INFORMATION
  Report Type: 
  Country: None (occurrence: None)
  Receive Date: 20110401
  Receipt Date: 20110321
  Transmission Date: 20111010
  Serious: Yes (Hospitalization)
  Sender: FDA-Public Use
  Company Number: PHHY2011US16105

PATIENT
  Sex: Female
  Weight: 53 kg

DRUGS (11)
  1. KEPPRA [Concomitant]
     Dosage: UNK
  2. PRILOSEC [Concomitant]
     Dosage: UNK
  3. EXJADE [Suspect]
     Indication: SICKLE CELL ANAEMIA
     Dosage: 1500 MG DAILY
     Route: 048
     Dates: start: 20080201, end: 20110228
  4. MIRALAX [Concomitant]
     Dosage: UNK
  5. ASCORBIC ACID [Concomitant]
     Dosage: UNK
  6. TRILEPTAL [Concomitant]
     Dosage: UNK
  7. PREDNISONE [Concomitant]
     Dosage: UNK
  8. CALCIUM [Concomitant]
     Dosage: UNK
  9. LEVAQUIN [Concomitant]
  10. VITAMIN D [Concomitant]
     Dosage: UNK
  11. ZONEGRAN [Concomitant]
     Dosage: UNK

REACTIONS (6)
  - BACK PAIN [None]
  - CONSTIPATION [None]
  - SICKLE CELL ANAEMIA WITH CRISIS [None]
  - PNEUMONIA [None]
  - MUSCULOSKELETAL CHEST PAIN [None]
  - HEPATOMEGALY [None]
